FAERS Safety Report 6772928-9 (Version None)
Quarter: 2010Q2

REPORT INFORMATION
  Report Type: 
  Country: None (occurrence: None)
  Receive Date: 20100616
  Receipt Date: 20100610
  Transmission Date: 20101027
  Serious: Yes (Life-Threatening, Hospitalization)
  Sender: FDA-Public Use
  Company Number: ES-ABBOTT-10P-144-0650536-00

PATIENT
  Age: 2 Year
  Sex: Male

DRUGS (8)
  1. SEVORANE [Suspect]
     Indication: INDUCTION OF ANAESTHESIA
     Dates: start: 20100115, end: 20100115
  2. RANITIDINA [Concomitant]
     Indication: PROPHYLAXIS AGAINST GASTROINTESTINAL ULCER
     Route: 042
     Dates: start: 20100113
  3. CEFAZOLINA [Concomitant]
     Indication: PROPHYLAXIS
     Dates: start: 20100115
  4. VANCOMICINA [Concomitant]
     Indication: DRUG USE FOR UNKNOWN INDICATION
     Dates: start: 20100101
  5. SILDENAFILO [Concomitant]
     Indication: PULMONARY HYPERTENSION
     Route: 042
     Dates: start: 20100115
  6. CEFOTAXIMA [Concomitant]
     Indication: DRUG USE FOR UNKNOWN INDICATION
     Dates: start: 20100101
  7. ALDACTONE [Concomitant]
     Indication: PULMONARY HYPERTENSION
     Route: 042
     Dates: start: 20100113
  8. SEGURIL [Concomitant]
     Indication: PULMONARY HYPERTENSION
     Dates: start: 20100113

REACTIONS (1)
  - CARDIO-RESPIRATORY ARREST [None]
